FAERS Safety Report 26054517 (Version 1)
Quarter: 2025Q4

REPORT INFORMATION
  Report Type: Spontaneous
  Country: US (occurrence: None)
  Receive Date: 20251117
  Receipt Date: 20251117
  Transmission Date: 20260118
  Serious: Yes (Other)
  Sender: FDA-CTU
  Company Number: None

PATIENT
  Age: 16 Year
  Sex: Male
  Weight: 85.95 kg

DRUGS (2)
  1. DOXYCYCLINE [Suspect]
     Active Substance: DOXYCYCLINE
     Indication: Acne
     Dosage: FREQUENCY : DAILY;?
     Route: 048
     Dates: start: 20250709, end: 20251115
  2. VITAMINS [Concomitant]
     Active Substance: VITAMINS

REACTIONS (7)
  - Mood swings [None]
  - Suicidal ideation [None]
  - Depression [None]
  - Self-injurious ideation [None]
  - Disturbance in attention [None]
  - Irritability [None]
  - Social problem [None]

NARRATIVE: CASE EVENT DATE: 20251110
